FAERS Safety Report 8322788-X (Version None)
Quarter: 2012Q2

REPORT INFORMATION
  Report Type: 
  Country: None (occurrence: None)
  Receive Date: 20120426
  Receipt Date: 20120424
  Transmission Date: 20120825
  Serious: Yes (Other)
  Sender: FDA-Public Use
  Company Number: ADR-2011-11333

PATIENT
  Age: 45 Year
  Sex: Female

DRUGS (2)
  1. LIORESAL [Suspect]
     Indication: PAIN
     Dosage: 90 MCG, DAILY, INTRATHE
     Route: 037
  2. LIORESAL [Suspect]
     Indication: SPINAL LAMINECTOMY
     Dosage: 90 MCG, DAILY, INTRATHE
     Route: 037

REACTIONS (6)
  - DEVICE DISLOCATION [None]
  - INCISION SITE INFECTION [None]
  - IMPAIRED HEALING [None]
  - INCISION SITE PAIN [None]
  - WOUND DEHISCENCE [None]
  - CELLULITIS [None]
